FAERS Safety Report 21788036 (Version 26)
Quarter: 2025Q2

REPORT INFORMATION
  Report Type: Spontaneous
  Country: CA (occurrence: CA)
  Receive Date: 20221228
  Receipt Date: 20250630
  Transmission Date: 20250717
  Serious: Yes (Other)
  Sender: BAUSCH AND LOMB
  Company Number: CA-BAUSCH-BL-2021-006694

PATIENT
  Age: 53 Year
  Sex: Male

DRUGS (203)
  1. TRIAMCINOLONE ACETONIDE [Suspect]
     Active Substance: TRIAMCINOLONE ACETONIDE
     Indication: Migraine
     Route: 065
  2. TRIAMCINOLONE ACETONIDE [Suspect]
     Active Substance: TRIAMCINOLONE ACETONIDE
     Route: 065
  3. TRIAMCINOLONE ACETONIDE [Suspect]
     Active Substance: TRIAMCINOLONE ACETONIDE
     Route: 065
  4. TRIAMCINOLONE ACETONIDE [Suspect]
     Active Substance: TRIAMCINOLONE ACETONIDE
     Route: 014
  5. TRIAMCINOLONE ACETONIDE [Suspect]
     Active Substance: TRIAMCINOLONE ACETONIDE
     Route: 065
  6. TRIAMCINOLONE ACETONIDE [Suspect]
     Active Substance: TRIAMCINOLONE ACETONIDE
     Route: 065
  7. DICLOFENAC [Suspect]
     Active Substance: DICLOFENAC
     Indication: Migraine
     Route: 065
  8. DICLOFENAC [Suspect]
     Active Substance: DICLOFENAC
     Route: 065
  9. DICLOFENAC [Suspect]
     Active Substance: DICLOFENAC
     Route: 065
  10. TRAMADOL HYDROCHLORIDE [Suspect]
     Active Substance: TRAMADOL HYDROCHLORIDE
     Indication: Migraine
     Route: 065
  11. TRAMADOL HYDROCHLORIDE [Suspect]
     Active Substance: TRAMADOL HYDROCHLORIDE
     Route: 065
  12. NEXIUM [Suspect]
     Active Substance: ESOMEPRAZOLE MAGNESIUM
     Indication: Product used for unknown indication
     Route: 048
  13. AMITRIPTYLINE [Suspect]
     Active Substance: AMITRIPTYLINE
     Indication: Product used for unknown indication
     Route: 065
  14. AMITRIPTYLINE [Suspect]
     Active Substance: AMITRIPTYLINE
     Route: 065
  15. AMITRIPTYLINE [Suspect]
     Active Substance: AMITRIPTYLINE
     Route: 065
  16. AMITRIPTYLINE [Suspect]
     Active Substance: AMITRIPTYLINE
     Route: 065
  17. AMITRIPTYLINE [Suspect]
     Active Substance: AMITRIPTYLINE
     Route: 065
  18. BOTULINUM TOXIN TYPE A [Suspect]
     Active Substance: BOTULINUM TOXIN TYPE A
     Indication: Product used for unknown indication
     Route: 065
  19. BOTULINUM TOXIN TYPE A [Suspect]
     Active Substance: BOTULINUM TOXIN TYPE A
     Route: 065
  20. BOTULINUM TOXIN TYPE A [Suspect]
     Active Substance: BOTULINUM TOXIN TYPE A
     Route: 065
  21. BOTULINUM TOXIN TYPE A [Suspect]
     Active Substance: BOTULINUM TOXIN TYPE A
     Route: 065
  22. BOTULINUM TOXIN TYPE A [Suspect]
     Active Substance: BOTULINUM TOXIN TYPE A
     Route: 065
  23. BOTULINUM TOXIN TYPE A [Suspect]
     Active Substance: BOTULINUM TOXIN TYPE A
     Route: 065
  24. BOTULINUM TOXIN TYPE A [Suspect]
     Active Substance: BOTULINUM TOXIN TYPE A
     Route: 065
  25. BOTULINUM TOXIN TYPE A [Suspect]
     Active Substance: BOTULINUM TOXIN TYPE A
     Route: 065
  26. BOTULINUM TOXIN TYPE A [Suspect]
     Active Substance: BOTULINUM TOXIN TYPE A
     Route: 030
  27. BOTULINUM TOXIN TYPE A [Suspect]
     Active Substance: BOTULINUM TOXIN TYPE A
     Route: 030
  28. BOTULINUM TOXIN TYPE A [Suspect]
     Active Substance: BOTULINUM TOXIN TYPE A
     Route: 065
  29. CELEBREX [Suspect]
     Active Substance: CELECOXIB
     Indication: Product used for unknown indication
     Route: 065
  30. CELEBREX [Suspect]
     Active Substance: CELECOXIB
     Indication: Arthritis
     Route: 030
  31. CELEBREX [Suspect]
     Active Substance: CELECOXIB
     Route: 065
  32. CODEINE [Suspect]
     Active Substance: CODEINE
     Indication: Migraine
     Route: 048
  33. CODEINE [Suspect]
     Active Substance: CODEINE
     Route: 048
  34. CODEINE [Suspect]
     Active Substance: CODEINE
     Route: 065
  35. CODEINE [Suspect]
     Active Substance: CODEINE
     Route: 065
  36. CODEINE [Suspect]
     Active Substance: CODEINE
     Route: 065
  37. CODEINE [Suspect]
     Active Substance: CODEINE
     Route: 065
  38. CODEINE [Suspect]
     Active Substance: CODEINE
     Route: 065
  39. CODEINE [Suspect]
     Active Substance: CODEINE
     Route: 048
  40. CODEINE [Suspect]
     Active Substance: CODEINE
     Route: 065
  41. DEMEROL [Suspect]
     Active Substance: MEPERIDINE HYDROCHLORIDE
     Indication: Product used for unknown indication
     Route: 065
  42. DEMEROL [Suspect]
     Active Substance: MEPERIDINE HYDROCHLORIDE
     Route: 065
  43. DEMEROL [Suspect]
     Active Substance: MEPERIDINE HYDROCHLORIDE
     Route: 065
  44. DULOXETINE [Suspect]
     Active Substance: DULOXETINE
     Indication: Migraine
     Route: 065
  45. DULOXETINE [Suspect]
     Active Substance: DULOXETINE
     Route: 048
  46. DULOXETINE [Suspect]
     Active Substance: DULOXETINE
     Route: 065
  47. DULOXETINE [Suspect]
     Active Substance: DULOXETINE
     Route: 065
  48. DULOXETINE [Suspect]
     Active Substance: DULOXETINE
     Route: 065
  49. DULOXETINE [Suspect]
     Active Substance: DULOXETINE
     Route: 065
  50. DULOXETINE [Suspect]
     Active Substance: DULOXETINE
     Route: 065
  51. DULOXETINE [Suspect]
     Active Substance: DULOXETINE
     Route: 065
  52. DULOXETINE [Suspect]
     Active Substance: DULOXETINE
     Route: 065
  53. DULOXETINE [Suspect]
     Active Substance: DULOXETINE
     Route: 065
  54. DULOXETINE [Suspect]
     Active Substance: DULOXETINE
     Route: 065
  55. DULOXETINE [Suspect]
     Active Substance: DULOXETINE
     Route: 065
  56. GABAPENTIN [Suspect]
     Active Substance: GABAPENTIN
     Indication: Product used for unknown indication
     Route: 065
  57. GABAPENTIN [Suspect]
     Active Substance: GABAPENTIN
     Route: 065
  58. HYDROMORPHONE [Suspect]
     Active Substance: HYDROMORPHONE
     Indication: Migraine
     Route: 065
  59. HYDROMORPHONE [Suspect]
     Active Substance: HYDROMORPHONE
     Route: 065
  60. HYDROMORPHONE [Suspect]
     Active Substance: HYDROMORPHONE
     Route: 065
  61. IBUPROFEN [Suspect]
     Active Substance: IBUPROFEN
     Indication: Product used for unknown indication
     Route: 065
  62. IBUPROFEN [Suspect]
     Active Substance: IBUPROFEN
     Route: 065
  63. MAXALT [Suspect]
     Active Substance: RIZATRIPTAN BENZOATE
     Indication: Product used for unknown indication
     Route: 065
  64. NORTRIPTYLINE HYDROCHLORIDE [Suspect]
     Active Substance: NORTRIPTYLINE HYDROCHLORIDE
     Indication: Product used for unknown indication
     Route: 065
  65. NORTRIPTYLINE HYDROCHLORIDE [Suspect]
     Active Substance: NORTRIPTYLINE HYDROCHLORIDE
     Route: 065
  66. NORTRIPTYLINE HYDROCHLORIDE [Suspect]
     Active Substance: NORTRIPTYLINE HYDROCHLORIDE
     Route: 030
  67. NORTRIPTYLINE HYDROCHLORIDE [Suspect]
     Active Substance: NORTRIPTYLINE HYDROCHLORIDE
     Route: 065
  68. PROPRANOLOL [Suspect]
     Active Substance: PROPRANOLOL HYDROCHLORIDE
     Indication: Migraine
     Route: 065
  69. PROPRANOLOL [Suspect]
     Active Substance: PROPRANOLOL HYDROCHLORIDE
     Route: 065
  70. PROPRANOLOL [Suspect]
     Active Substance: PROPRANOLOL HYDROCHLORIDE
     Route: 065
  71. PROPRANOLOL [Suspect]
     Active Substance: PROPRANOLOL HYDROCHLORIDE
     Route: 065
  72. PROPRANOLOL [Suspect]
     Active Substance: PROPRANOLOL HYDROCHLORIDE
     Route: 065
  73. TENORETIC [Suspect]
     Active Substance: ATENOLOL\CHLORTHALIDONE
     Indication: Product used for unknown indication
     Route: 048
  74. TENORETIC [Suspect]
     Active Substance: ATENOLOL\CHLORTHALIDONE
     Route: 048
  75. TENORETIC [Suspect]
     Active Substance: ATENOLOL\CHLORTHALIDONE
     Route: 048
  76. TENORETIC [Suspect]
     Active Substance: ATENOLOL\CHLORTHALIDONE
     Route: 048
  77. TENORETIC [Suspect]
     Active Substance: ATENOLOL\CHLORTHALIDONE
     Route: 048
  78. TENORETIC [Suspect]
     Active Substance: ATENOLOL\CHLORTHALIDONE
     Route: 048
  79. TENORETIC [Suspect]
     Active Substance: ATENOLOL\CHLORTHALIDONE
     Route: 065
  80. TENORETIC [Suspect]
     Active Substance: ATENOLOL\CHLORTHALIDONE
     Route: 048
  81. TENORETIC [Suspect]
     Active Substance: ATENOLOL\CHLORTHALIDONE
     Route: 048
  82. TENORETIC [Suspect]
     Active Substance: ATENOLOL\CHLORTHALIDONE
     Route: 065
  83. TENORETIC [Suspect]
     Active Substance: ATENOLOL\CHLORTHALIDONE
     Route: 065
  84. TENORETIC [Suspect]
     Active Substance: ATENOLOL\CHLORTHALIDONE
     Route: 065
  85. TOPAMAX [Suspect]
     Active Substance: TOPIRAMATE
     Indication: Product used for unknown indication
     Route: 048
  86. TOPAMAX [Suspect]
     Active Substance: TOPIRAMATE
     Route: 065
  87. TOPAMAX [Suspect]
     Active Substance: TOPIRAMATE
     Route: 065
  88. TOPAMAX [Suspect]
     Active Substance: TOPIRAMATE
     Route: 065
  89. TORADOL [Suspect]
     Active Substance: KETOROLAC TROMETHAMINE
     Indication: Product used for unknown indication
     Route: 065
  90. TORADOL [Suspect]
     Active Substance: KETOROLAC TROMETHAMINE
     Route: 065
  91. TORADOL [Suspect]
     Active Substance: KETOROLAC TROMETHAMINE
     Route: 065
  92. TORADOL [Suspect]
     Active Substance: KETOROLAC TROMETHAMINE
     Route: 065
  93. TYLENOL [Suspect]
     Active Substance: ACETAMINOPHEN
     Indication: Product used for unknown indication
     Route: 065
  94. TYLENOL [Suspect]
     Active Substance: ACETAMINOPHEN
     Route: 048
  95. ENDOCET [Suspect]
     Active Substance: ACETAMINOPHEN\OXYCODONE HYDROCHLORIDE
     Indication: Migraine
     Route: 065
  96. ENDOCET [Suspect]
     Active Substance: ACETAMINOPHEN\OXYCODONE HYDROCHLORIDE
     Route: 048
  97. ENDOCET [Suspect]
     Active Substance: ACETAMINOPHEN\OXYCODONE HYDROCHLORIDE
     Route: 065
  98. TRAMADOL HYDROCHLORIDE [Suspect]
     Active Substance: TRAMADOL HYDROCHLORIDE
     Indication: Migraine
     Route: 065
  99. TRAMADOL HYDROCHLORIDE [Suspect]
     Active Substance: TRAMADOL HYDROCHLORIDE
     Route: 065
  100. DICLOFENAC [Suspect]
     Active Substance: DICLOFENAC
     Indication: Migraine
     Route: 065
  101. NAPROXEN [Suspect]
     Active Substance: NAPROXEN
     Indication: Migraine
     Route: 048
  102. NAPROXEN [Suspect]
     Active Substance: NAPROXEN
     Route: 065
  103. NAPROXEN [Suspect]
     Active Substance: NAPROXEN
     Route: 048
  104. NAPROXEN [Suspect]
     Active Substance: NAPROXEN
     Route: 065
  105. TOPIRAMATE [Suspect]
     Active Substance: TOPIRAMATE
     Indication: Migraine
     Route: 048
  106. TOPIRAMATE [Suspect]
     Active Substance: TOPIRAMATE
     Route: 065
  107. TOPIRAMATE [Suspect]
     Active Substance: TOPIRAMATE
     Route: 065
  108. TOPIRAMATE [Suspect]
     Active Substance: TOPIRAMATE
     Route: 065
  109. KETAMINE [Suspect]
     Active Substance: KETAMINE
     Indication: Migraine
     Route: 065
  110. KETAMINE [Suspect]
     Active Substance: KETAMINE
     Route: 065
  111. KETAMINE [Suspect]
     Active Substance: KETAMINE
     Route: 065
  112. KETAMINE [Suspect]
     Active Substance: KETAMINE
     Route: 065
  113. NORTRIPTYLINE [Suspect]
     Active Substance: NORTRIPTYLINE
     Indication: Product used for unknown indication
     Route: 065
  114. DULOXETINE [Suspect]
     Active Substance: DULOXETINE
     Indication: Migraine
     Route: 065
  115. DULOXETINE [Suspect]
     Active Substance: DULOXETINE
     Route: 065
  116. DULOXETINE [Suspect]
     Active Substance: DULOXETINE
     Route: 065
  117. ACETAMINOPHEN [Suspect]
     Active Substance: ACETAMINOPHEN
     Indication: Migraine
     Route: 065
  118. ACETAMINOPHEN [Suspect]
     Active Substance: ACETAMINOPHEN
     Indication: Product used for unknown indication
     Route: 065
  119. ACETAMINOPHEN [Suspect]
     Active Substance: ACETAMINOPHEN
     Route: 065
  120. ACETAMINOPHEN [Suspect]
     Active Substance: ACETAMINOPHEN
     Route: 065
  121. ACETAMINOPHEN [Suspect]
     Active Substance: ACETAMINOPHEN
     Route: 048
  122. ACETAMINOPHEN [Suspect]
     Active Substance: ACETAMINOPHEN
     Route: 065
  123. ACETAMINOPHEN\OXYCODONE HYDROCHLORIDE [Suspect]
     Active Substance: ACETAMINOPHEN\OXYCODONE HYDROCHLORIDE
     Indication: Migraine
     Route: 065
  124. ACETAMINOPHEN\OXYCODONE HYDROCHLORIDE [Suspect]
     Active Substance: ACETAMINOPHEN\OXYCODONE HYDROCHLORIDE
     Route: 048
  125. ESOMEPRAZOLE MAGNESIUM\NAPROXEN [Suspect]
     Active Substance: ESOMEPRAZOLE MAGNESIUM\NAPROXEN
     Indication: Product used for unknown indication
     Route: 048
  126. ZOFRAN [Suspect]
     Active Substance: ONDANSETRON HYDROCHLORIDE
     Indication: Migraine
     Route: 065
  127. ZOFRAN [Suspect]
     Active Substance: ONDANSETRON HYDROCHLORIDE
     Route: 065
  128. ACETAMINOPHEN\TRAMADOL [Suspect]
     Active Substance: ACETAMINOPHEN\TRAMADOL
     Indication: Migraine
     Route: 065
  129. ACETAMINOPHEN\TRAMADOL [Suspect]
     Active Substance: ACETAMINOPHEN\TRAMADOL
     Route: 065
  130. ACETAMINOPHEN\TRAMADOL [Suspect]
     Active Substance: ACETAMINOPHEN\TRAMADOL
     Route: 048
  131. ACETAMINOPHEN\TRAMADOL [Suspect]
     Active Substance: ACETAMINOPHEN\TRAMADOL
     Route: 065
  132. ACETAMINOPHEN\TRAMADOL [Suspect]
     Active Substance: ACETAMINOPHEN\TRAMADOL
     Route: 065
  133. ACETAMINOPHEN\TRAMADOL [Suspect]
     Active Substance: ACETAMINOPHEN\TRAMADOL
     Route: 065
  134. ALMOTRIPTAN [Suspect]
     Active Substance: ALMOTRIPTAN
     Indication: Product used for unknown indication
     Route: 065
  135. ALMOTRIPTAN [Suspect]
     Active Substance: ALMOTRIPTAN
     Route: 065
  136. ALMOTRIPTAN [Suspect]
     Active Substance: ALMOTRIPTAN
     Route: 065
  137. ALMOTRIPTAN [Suspect]
     Active Substance: ALMOTRIPTAN
     Route: 065
  138. AXERT [Suspect]
     Active Substance: ALMOTRIPTAN MALATE
     Indication: Product used for unknown indication
     Route: 065
  139. MORPHINE [Suspect]
     Active Substance: MORPHINE
     Indication: Migraine
     Route: 065
  140. MORPHINE [Suspect]
     Active Substance: MORPHINE
     Route: 065
  141. MORPHINE [Suspect]
     Active Substance: MORPHINE
     Route: 065
  142. MORPHINE [Suspect]
     Active Substance: MORPHINE
     Route: 065
  143. ONDANSETRON HYDROCHLORIDE [Suspect]
     Active Substance: ONDANSETRON HYDROCHLORIDE
     Indication: Migraine
     Route: 065
  144. ONDANSETRON HYDROCHLORIDE [Suspect]
     Active Substance: ONDANSETRON HYDROCHLORIDE
     Route: 065
  145. ONDANSETRON HYDROCHLORIDE [Suspect]
     Active Substance: ONDANSETRON HYDROCHLORIDE
     Route: 065
  146. VIMOVO [Suspect]
     Active Substance: ESOMEPRAZOLE MAGNESIUM\NAPROXEN
     Indication: Product used for unknown indication
     Route: 048
  147. VIMOVO [Suspect]
     Active Substance: ESOMEPRAZOLE MAGNESIUM\NAPROXEN
     Route: 065
  148. EFFEXOR [Suspect]
     Active Substance: VENLAFAXINE HYDROCHLORIDE
     Indication: Migraine
     Route: 065
  149. EFFEXOR [Suspect]
     Active Substance: VENLAFAXINE HYDROCHLORIDE
     Route: 065
  150. ACETAMINOPHEN\CODEINE PHOSPHATE [Suspect]
     Active Substance: ACETAMINOPHEN\CODEINE PHOSPHATE
     Indication: Product used for unknown indication
     Route: 065
  151. TRIAMCINOLONE ACETONIDE [Suspect]
     Active Substance: TRIAMCINOLONE ACETONIDE
     Indication: Migraine
     Route: 065
  152. TRIAMCINOLONE ACETONIDE [Suspect]
     Active Substance: TRIAMCINOLONE ACETONIDE
     Route: 065
  153. VENLAFAXINE HYDROCHLORIDE [Suspect]
     Active Substance: VENLAFAXINE HYDROCHLORIDE
     Indication: Migraine
     Route: 065
  154. VENLAFAXINE HYDROCHLORIDE [Suspect]
     Active Substance: VENLAFAXINE HYDROCHLORIDE
     Route: 065
  155. VENLAFAXINE HYDROCHLORIDE [Suspect]
     Active Substance: VENLAFAXINE HYDROCHLORIDE
     Route: 065
  156. DIHYDROERGOTAMINE MESYLATE [Suspect]
     Active Substance: DIHYDROERGOTAMINE MESYLATE
     Indication: Migraine
     Route: 065
  157. DIHYDROERGOTAMINE MESYLATE [Suspect]
     Active Substance: DIHYDROERGOTAMINE MESYLATE
     Route: 065
  158. DIHYDROERGOTAMINE MESYLATE [Suspect]
     Active Substance: DIHYDROERGOTAMINE MESYLATE
     Route: 065
  159. RIZATRIPTAN BENZOATE [Suspect]
     Active Substance: RIZATRIPTAN BENZOATE
     Indication: Product used for unknown indication
     Route: 065
  160. ACETAMINOPHEN\CAFFEINE\CHLORPHENIRAMINE\PHENYLPROPANOLAMINE [Suspect]
     Active Substance: ACETAMINOPHEN\CAFFEINE\CHLORPHENIRAMINE\PHENYLPROPANOLAMINE
     Indication: Product used for unknown indication
     Route: 065
  161. BOTOX [Suspect]
     Active Substance: ONABOTULINUMTOXINA
     Indication: Product used for unknown indication
     Route: 065
  162. BOTOX [Suspect]
     Active Substance: ONABOTULINUMTOXINA
     Route: 030
  163. BOTOX [Suspect]
     Active Substance: ONABOTULINUMTOXINA
     Route: 030
  164. BOTOX [Suspect]
     Active Substance: ONABOTULINUMTOXINA
     Dosage: ADMINISTERED - 3 TIMES (1 IN 1 D)
     Route: 065
  165. BOTOX [Suspect]
     Active Substance: ONABOTULINUMTOXINA
     Route: 065
  166. BOTOX [Suspect]
     Active Substance: ONABOTULINUMTOXINA
     Route: 030
  167. BOTOX [Suspect]
     Active Substance: ONABOTULINUMTOXINA
     Route: 065
  168. BOTOX [Suspect]
     Active Substance: ONABOTULINUMTOXINA
     Route: 065
  169. BOTOX [Suspect]
     Active Substance: ONABOTULINUMTOXINA
     Route: 065
  170. BOTOX [Suspect]
     Active Substance: ONABOTULINUMTOXINA
     Route: 065
  171. BOTOX [Suspect]
     Active Substance: ONABOTULINUMTOXINA
     Route: 065
  172. BOTOX [Suspect]
     Active Substance: ONABOTULINUMTOXINA
     Route: 065
  173. BOTOX [Suspect]
     Active Substance: ONABOTULINUMTOXINA
     Route: 030
  174. BOTOX [Suspect]
     Active Substance: ONABOTULINUMTOXINA
     Route: 030
  175. BOTOX [Suspect]
     Active Substance: ONABOTULINUMTOXINA
     Route: 030
  176. ACETAMINOPHEN\CHLORPHENIRAMINE\CODEINE [Suspect]
     Active Substance: ACETAMINOPHEN\CHLORPHENIRAMINE\CODEINE
     Indication: Product used for unknown indication
     Route: 065
  177. DICLOFENAC DIETHYLAMINE [Suspect]
     Active Substance: DICLOFENAC DIETHYLAMINE
     Indication: Migraine
     Route: 065
  178. ATENOLOL\CHLORTHALIDONE [Suspect]
     Active Substance: ATENOLOL\CHLORTHALIDONE
     Indication: Product used for unknown indication
     Route: 065
  179. ELAVIL [Suspect]
     Active Substance: AMITRIPTYLINE HYDROCHLORIDE
     Indication: Product used for unknown indication
     Route: 065
  180. KETOROLAC [Suspect]
     Active Substance: KETOROLAC TROMETHAMINE
     Indication: Product used for unknown indication
     Route: 065
  181. DIHYDROERGOTAMINE [Suspect]
     Active Substance: DIHYDROERGOTAMINE
     Indication: Migraine
     Route: 065
  182. DIHYDROERGOTAMINE [Suspect]
     Active Substance: DIHYDROERGOTAMINE
     Route: 065
  183. DICLOFENAC POTASSIUM [Suspect]
     Active Substance: DICLOFENAC POTASSIUM
     Indication: Migraine
     Route: 065
  184. DICLOFENAC DIETHYLAMINE [Suspect]
     Active Substance: DICLOFENAC DIETHYLAMINE
     Indication: Migraine
     Route: 065
  185. CELECOXIB [Suspect]
     Active Substance: CELECOXIB
     Indication: Arthritis
     Route: 065
  186. OXYCODONE HYDROCHLORIDE [Suspect]
     Active Substance: OXYCODONE HYDROCHLORIDE
     Indication: Migraine
     Route: 048
  187. OXYCODONE HYDROCHLORIDE [Suspect]
     Active Substance: OXYCODONE HYDROCHLORIDE
     Route: 065
  188. ADVIL [Suspect]
     Active Substance: IBUPROFEN
     Indication: Product used for unknown indication
     Route: 065
  189. ADVIL [Suspect]
     Active Substance: IBUPROFEN
     Route: 065
  190. ADVIL [Suspect]
     Active Substance: IBUPROFEN
     Route: 065
  191. ADVIL [Suspect]
     Active Substance: IBUPROFEN
     Route: 065
  192. ESOMEPRAZOLE MAGNESIUM [Suspect]
     Active Substance: ESOMEPRAZOLE MAGNESIUM
     Indication: Product used for unknown indication
     Route: 048
  193. ESOMEPRAZOLE MAGNESIUM [Suspect]
     Active Substance: ESOMEPRAZOLE MAGNESIUM
     Route: 048
  194. ESOMEPRAZOLE MAGNESIUM [Suspect]
     Active Substance: ESOMEPRAZOLE MAGNESIUM
     Route: 048
  195. ESOMEPRAZOLE MAGNESIUM [Suspect]
     Active Substance: ESOMEPRAZOLE MAGNESIUM
     Route: 048
  196. ESOMEPRAZOLE MAGNESIUM [Suspect]
     Active Substance: ESOMEPRAZOLE MAGNESIUM
     Route: 048
  197. ESOMEPRAZOLE MAGNESIUM [Suspect]
     Active Substance: ESOMEPRAZOLE MAGNESIUM
     Route: 065
  198. ESOMEPRAZOLE MAGNESIUM [Suspect]
     Active Substance: ESOMEPRAZOLE MAGNESIUM
     Route: 048
  199. ESOMEPRAZOLE MAGNESIUM [Suspect]
     Active Substance: ESOMEPRAZOLE MAGNESIUM
     Route: 065
  200. ESOMEPRAZOLE MAGNESIUM [Suspect]
     Active Substance: ESOMEPRAZOLE MAGNESIUM
     Route: 065
  201. ESOMEPRAZOLE MAGNESIUM [Suspect]
     Active Substance: ESOMEPRAZOLE MAGNESIUM
     Route: 065
  202. DICLOFENAC DIETHYLAMINE [Suspect]
     Active Substance: DICLOFENAC DIETHYLAMINE
     Indication: Migraine
     Route: 065
  203. IODINE [Suspect]
     Active Substance: IODINE
     Indication: Migraine
     Route: 065

REACTIONS (9)
  - Nephrolithiasis [Unknown]
  - Sedation [Unknown]
  - Nightmare [Unknown]
  - Hyperhidrosis [Unknown]
  - Nausea [Unknown]
  - Drug ineffective [Unknown]
  - Product use in unapproved indication [Unknown]
  - Off label use [Unknown]
  - Product used for unknown indication [Unknown]
